FAERS Safety Report 5657908-9 (Version None)
Quarter: 2008Q1

REPORT INFORMATION
  Report Type: 
  Country: None (occurrence: None)
  Receive Date: 20080310
  Receipt Date: 20080229
  Transmission Date: 20080703
  Serious: Yes (Other)
  Sender: FDA-Public Use
  Company Number: PHNU2008DE01173

PATIENT

DRUGS (1)
  1. SANDIMMUNE [Suspect]
     Indication: STEM CELL TRANSPLANT

REACTIONS (4)
  - ACCIDENTAL OVERDOSE [None]
  - BLOOD CREATINE PHOSPHOKINASE INCREASED [None]
  - DRUG LEVEL INCREASED [None]
  - RHABDOMYOLYSIS [None]
